FAERS Safety Report 21707530 (Version 1)
Quarter: 2022Q4

REPORT INFORMATION
  Report Type: Spontaneous
  Country: US (occurrence: US)
  Receive Date: 20221209
  Receipt Date: 20221209
  Transmission Date: 20230112
  Serious: Yes (Hospitalization, Other)
  Sender: FDA-Public Use
  Company Number: US-TAKEDA-2022TUS094438

PATIENT
  Sex: Female
  Weight: 41 kg

DRUGS (23)
  1. TRINTELLIX [Suspect]
     Active Substance: VORTIOXETINE HYDROBROMIDE
     Indication: Depression
     Dosage: 20 MILLIGRAM
     Route: 065
  2. TRINTELLIX [Suspect]
     Active Substance: VORTIOXETINE HYDROBROMIDE
     Indication: Anxiety
  3. HYDROXYCHLOROQUINE [Concomitant]
     Active Substance: HYDROXYCHLOROQUINE
     Dosage: UNK
  4. BUSPIRONE [Concomitant]
     Active Substance: BUSPIRONE HYDROCHLORIDE
     Dosage: UNK
  5. MORPHINE [Concomitant]
     Active Substance: MORPHINE
     Dosage: UNK
  6. CLONAZEPAM [Concomitant]
     Active Substance: CLONAZEPAM
     Dosage: UNK
  7. OXYCODONE [Concomitant]
     Active Substance: OXYCODONE
     Dosage: UNK
  8. XANAX [Concomitant]
     Active Substance: ALPRAZOLAM
     Dosage: UNK
  9. RIFAMPIN [Concomitant]
     Active Substance: RIFAMPIN
     Dosage: UNK
  10. INSULIN NOS [Concomitant]
     Active Substance: INSULIN NOS
     Dosage: UNK
  11. DAPTOMYCIN [Concomitant]
     Active Substance: DAPTOMYCIN
     Dosage: UNK
  12. TPN [Concomitant]
     Active Substance: AMINO ACIDS\DEXTROSE\ELECTROLYTES NOS\SOYBEAN OIL
     Dosage: UNK
  13. CLINDAMYCIN [Concomitant]
     Active Substance: CLINDAMYCIN
     Dosage: UNK
  14. LEVOFLOXACIN [Concomitant]
     Active Substance: LEVOFLOXACIN
     Dosage: UNK
  15. SUPRAX [Concomitant]
     Active Substance: CEFIXIME
     Dosage: UNK
  16. MINOCYCLINE [Concomitant]
     Active Substance: MINOCYCLINE HYDROCHLORIDE
     Dosage: UNK
  17. CIPROFLOXACIN [Concomitant]
     Active Substance: CIPROFLOXACIN
     Dosage: UNK
  18. LINEZOLID [Concomitant]
     Active Substance: LINEZOLID
     Dosage: UNK
  19. NITROFURANTOIN [Concomitant]
     Active Substance: NITROFURANTOIN
     Dosage: UNK
  20. AMOXICILLIN [Concomitant]
     Active Substance: AMOXICILLIN
     Dosage: UNK
  21. VANCOMYCIN [Concomitant]
     Active Substance: VANCOMYCIN
     Dosage: UNK
  22. GENTAMICIN [Concomitant]
     Active Substance: GENTAMICIN
     Dosage: UNK
  23. TETRACYCLINE [Concomitant]
     Active Substance: TETRACYCLINE
     Dosage: UNK

REACTIONS (7)
  - Delirium [Unknown]
  - Confusional state [Unknown]
  - Pyrexia [Unknown]
  - Memory impairment [Unknown]
  - Screaming [Unknown]
  - Anger [Unknown]
  - Agitation [Unknown]
